FAERS Safety Report 6353980-1 (Version None)
Quarter: 2009Q3

REPORT INFORMATION
  Report Type: 
  Country: None (occurrence: None)
  Receive Date: 20090914
  Receipt Date: 20090901
  Transmission Date: 20100115
  Serious: Yes (Other)
  Sender: FDA-Public Use
  Company Number: NL-ELI_LILLY_AND_COMPANY-NL200906005251

PATIENT
  Sex: Female

DRUGS (7)
  1. CYMBALTA [Suspect]
     Indication: DEPRESSION
     Dosage: 30 MG, DAILY (1/D)
     Route: 065
     Dates: start: 20071227
  2. CYMBALTA [Suspect]
     Dosage: RECHALLENGED AT UNKNOWN DOSE
     Route: 065
  3. OXAZEPAM [Concomitant]
     Dosage: 60 MG, AS NEEDED
     Route: 065
  4. ASCAL [Concomitant]
     Dosage: 80 MG, DAILY (1/D)
     Route: 065
  5. PANTAZOL [Concomitant]
     Dosage: 40 MG, DAILY (1/D)
     Route: 065
  6. METAMUCIL [Concomitant]
     Dosage: 2 SACHETS, DAILY (1/D)
  7. METOPROLOL TARTRATE [Concomitant]
     Dosage: 200 MG, DAILY (1/D)
     Route: 065

REACTIONS (5)
  - COGNITIVE DISORDER [None]
  - FALL [None]
  - MENTAL IMPAIRMENT [None]
  - ORTHOSTATIC INTOLERANCE [None]
  - PARKINSONISM [None]
